FAERS Safety Report 11543414 (Version 1)
Quarter: 2015Q3

REPORT INFORMATION
  Report Type: Report from Study
  Country: DE (occurrence: DE)
  Receive Date: 20150923
  Receipt Date: 20150923
  Transmission Date: 20151125
  Serious: Yes (Death, Other)
  Sender: FDA-Public Use
  Company Number: DE-KADMON PHARMACEUTICALS, LLC-KAD201508-002995

PATIENT

DRUGS (3)
  1. PEGINTERFERON ALFA-2A [Suspect]
     Active Substance: PEGINTERFERON ALFA-2A
     Indication: CHRONIC HEPATITIS C
  2. RIBAVIRIN. [Suspect]
     Active Substance: RIBAVIRIN
     Indication: CHRONIC HEPATITIS C
  3. ALISPORIVIR [Suspect]
     Active Substance: ALISPORIVIR
     Indication: CHRONIC HEPATITIS C

REACTIONS (3)
  - Hepatic cirrhosis [Unknown]
  - Multi-organ failure [Fatal]
  - Pancreatitis acute [Unknown]
